FAERS Safety Report 8485456-X (Version None)
Quarter: 2012Q2

REPORT INFORMATION
  Report Type: 
  Country: None (occurrence: None)
  Receive Date: 20120627
  Receipt Date: 20120627
  Transmission Date: 20120825
  Serious: Yes (Disabling)
  Sender: FDA-Public Use
  Company Number: None

PATIENT
  Sex: Female

DRUGS (1)
  1. BACTRIM [Suspect]
     Indication: URINARY TRACT INFECTION
     Dosage: ONCE A DAY PO
     Route: 048
     Dates: start: 20111201, end: 20120108

REACTIONS (1)
  - APLASTIC ANAEMIA [None]
